FAERS Safety Report 24208751 (Version 1)
Quarter: 2024Q3

REPORT INFORMATION
  Report Type: Spontaneous
  Country: US (occurrence: US)
  Receive Date: 20240814
  Receipt Date: 20240814
  Transmission Date: 20241017
  Serious: No
  Sender: AMGEN
  Company Number: US-AMGEN-USASP2024158948

PATIENT
  Sex: Male

DRUGS (7)
  1. EPOGEN [Suspect]
     Active Substance: ERYTHROPOIETIN
     Indication: End stage renal disease
     Dosage: 3000 UNIT, Q3WK
     Route: 065
  2. CINACALCET [Concomitant]
     Active Substance: CINACALCET
     Dosage: 5 MILLIGRAM, Q3WK
     Route: 048
  3. SILDENAFIL [Concomitant]
     Active Substance: SILDENAFIL
     Dosage: 4 MILLIGRAM, TID
     Route: 065
  4. PARICALCITOL [Concomitant]
     Active Substance: PARICALCITOL
     Dosage: 6 MICROGRAM, Q3WK
     Route: 042
  5. NEPHRONEX [Concomitant]
     Dosage: 1 MILLILITER, QD
  6. CALCARB [Concomitant]
     Dosage: 2.5 MILLILITER, BID
     Route: 065
  7. FERRLECIT [Concomitant]
     Active Substance: SODIUM FERRIC GLUCONATE COMPLEX
     Dosage: 12.5 MILLIGRAM, QWK
     Route: 042

REACTIONS (1)
  - Drug ineffective [Unknown]

NARRATIVE: CASE EVENT DATE: 20240101
